FAERS Safety Report 7973375-4 (Version None)
Quarter: 2011Q4

REPORT INFORMATION
  Report Type: 
  Country: None (occurrence: None)
  Receive Date: 20111213
  Receipt Date: 20110817
  Transmission Date: 20120403
  Serious: No
  Sender: FDA-Public Use
  Company Number: US-AMGEN-USASP2011042326

PATIENT

DRUGS (2)
  1. ARANESP [Suspect]
     Indication: MYELODYSPLASTIC SYNDROME
  2. EPOGEN [Suspect]
     Indication: MYELODYSPLASTIC SYNDROME

REACTIONS (1)
  - DRUG INEFFECTIVE [None]
